FAERS Safety Report 14155332 (Version 3)
Quarter: 2024Q1

REPORT INFORMATION
  Report Type: Report from Study
  Country: US (occurrence: US)
  Receive Date: 20171103
  Receipt Date: 20240306
  Transmission Date: 20240410
  Serious: No
  Sender: FDA-Public Use
  Company Number: US-PUMA BIOTECHNOLOGY, LTD.-2017US012774

PATIENT

DRUGS (2)
  1. NERLYNX [Interacting]
     Active Substance: NERATINIB
     Indication: Breast cancer
     Dosage: 240 MG (6 TABLETS), DAILY
     Route: 048
     Dates: start: 20170908
  2. FLUCONAZOLE [Interacting]
     Active Substance: FLUCONAZOLE
     Indication: Product used for unknown indication
     Dosage: UNK
     Route: 065
     Dates: start: 20180706

REACTIONS (8)
  - Feeling abnormal [Unknown]
  - Constipation [Recovered/Resolved]
  - Dyspepsia [Unknown]
  - Nausea [Recovering/Resolving]
  - Fatigue [Recovering/Resolving]
  - Decreased appetite [Recovering/Resolving]
  - Diarrhoea [Recovering/Resolving]
  - Drug interaction [Unknown]

NARRATIVE: CASE EVENT DATE: 20170918
